FAERS Safety Report 5899267-2 (Version None)
Quarter: 2008Q3

REPORT INFORMATION
  Report Type: 
  Country: None (occurrence: None)
  Receive Date: 20080828
  Receipt Date: 20080318
  Transmission Date: 20090109
  Serious: Yes (Hospitalization)
  Sender: FDA-Public Use
  Company Number: CIP08000307

PATIENT
  Age: 51 Year
  Sex: Female
  Weight: 81.8 kg

DRUGS (5)
  1. ASACOL [Suspect]
     Indication: COLITIS ULCERATIVE
     Dosage: 1200 MG THREE TIMES DAILY, ORAL ; 800 MG THREE TIMES DAILY, ORAL ; 800 MG, 4/DAY, ORAL
     Route: 048
     Dates: end: 20080226
  2. ASACOL [Suspect]
     Indication: COLITIS ULCERATIVE
     Dosage: 1200 MG THREE TIMES DAILY, ORAL ; 800 MG THREE TIMES DAILY, ORAL ; 800 MG, 4/DAY, ORAL
     Route: 048
     Dates: start: 20080227, end: 20080227
  3. ASACOL [Suspect]
     Indication: COLITIS ULCERATIVE
     Dosage: 1200 MG THREE TIMES DAILY, ORAL ; 800 MG THREE TIMES DAILY, ORAL ; 800 MG, 4/DAY, ORAL
     Route: 048
     Dates: start: 20080228, end: 20080228
  4. PREDNISONE [Suspect]
     Indication: COLITIS ULCERATIVE
     Dosage: 30 MG TWICE DAILY, ORAL ; 20 GM, 2/DAY, ORAL
     Route: 048
     Dates: end: 20080226
  5. PREDNISONE [Suspect]
     Indication: COLITIS ULCERATIVE
     Dosage: 30 MG TWICE DAILY, ORAL ; 20 GM, 2/DAY, ORAL
     Route: 048
     Dates: start: 20080227, end: 20080228

REACTIONS (7)
  - BACK PAIN [None]
  - DEHYDRATION [None]
  - DIARRHOEA [None]
  - HYPOKALAEMIA [None]
  - MEDICATION RESIDUE [None]
  - PAIN IN EXTREMITY [None]
  - VOMITING [None]
